FAERS Safety Report 12746253 (Version 2)
Quarter: 2017Q1

REPORT INFORMATION
  Report Type: Spontaneous
  Country: FI (occurrence: FI)
  Receive Date: 20160915
  Receipt Date: 20170124
  Transmission Date: 20170428
  Serious: Yes (Other)
  Sender: FDA-Public Use
  Company Number: FI-PFIZER INC-2016403023

PATIENT
  Age: 69 Year
  Sex: Male

DRUGS (3)
  1. CAVERJECT [Suspect]
     Active Substance: ALPROSTADIL
     Dosage: 20 UG, UNK
     Dates: start: 20160113
  2. AMLORATIO [Concomitant]
     Active Substance: AMLODIPINE BESYLATE
     Dosage: 10 MG, DAILY
  3. ORBEOS [Concomitant]
     Active Substance: ATORVASTATIN CALCIUM
     Dosage: 10 MG, DAILY

REACTIONS (3)
  - Extradural neoplasm [Unknown]
  - Spinal column stenosis [Unknown]
  - Back pain [Unknown]

NARRATIVE: CASE EVENT DATE: 20160706
